FAERS Safety Report 14128599 (Version 1)
Quarter: 2017Q4

REPORT INFORMATION
  Report Type: Spontaneous
  Country: US (occurrence: US)
  Receive Date: 20171026
  Receipt Date: 20171026
  Transmission Date: 20180321
  Serious: Yes (Hospitalization)
  Sender: FDA-Public Use
  Company Number: None

PATIENT
  Age: 63 Year
  Sex: Female
  Weight: 87.75 kg

DRUGS (12)
  1. AMITIZA [Suspect]
     Active Substance: LUBIPROSTONE
     Indication: DIVERTICULITIS
     Dosage: ?          QUANTITY:1 CAPSULE(S);?
     Route: 048
     Dates: start: 20171001, end: 20171024
  2. AMITIZA [Suspect]
     Active Substance: LUBIPROSTONE
     Indication: IRRITABLE BOWEL SYNDROME
     Dosage: ?          QUANTITY:1 CAPSULE(S);?
     Route: 048
     Dates: start: 20171001, end: 20171024
  3. AMITIZA [Suspect]
     Active Substance: LUBIPROSTONE
     Indication: CONSTIPATION
     Dosage: ?          QUANTITY:1 CAPSULE(S);?
     Route: 048
     Dates: start: 20171001, end: 20171024
  4. ZOLOFT [Concomitant]
     Active Substance: SERTRALINE HYDROCHLORIDE
  5. MULTIPLE VITAMINS [Concomitant]
     Active Substance: VITAMINS
  6. EXTRA STRENGTH GAS X [Concomitant]
  7. NEXIUM [Concomitant]
     Active Substance: ESOMEPRAZOLE MAGNESIUM
  8. STOOL SOFTENER (DOCUSATE) [Concomitant]
     Active Substance: DOCUSATE
  9. GABAPENTIN. [Concomitant]
     Active Substance: GABAPENTIN
  10. VITAMIN D GEL TABS [Concomitant]
  11. HYZAAR [Concomitant]
     Active Substance: HYDROCHLOROTHIAZIDE\LOSARTAN POTASSIUM
  12. ZYRTEC [Concomitant]
     Active Substance: CETIRIZINE HYDROCHLORIDE

REACTIONS (4)
  - Dyspnoea [None]
  - Fatigue [None]
  - Chest pain [None]
  - Abdominal discomfort [None]

NARRATIVE: CASE EVENT DATE: 20171016
